FAERS Safety Report 19353250 (Version 5)
Quarter: 2021Q3

REPORT INFORMATION
  Report Type: Spontaneous
  Country: US (occurrence: US)
  Receive Date: 20210601
  Receipt Date: 20210908
  Transmission Date: 20211014
  Serious: No
  Sender: FDA-Public Use
  Company Number: US-SA-2021SA178811

PATIENT
  Age: 64 Year
  Sex: Male

DRUGS (1)
  1. CABLIVI [Suspect]
     Active Substance: CAPLACIZUMAB-YHDP
     Indication: THROMBOTIC MICROANGIOPATHY
     Dosage: 11 MG, QD
     Route: 058
     Dates: start: 20210425, end: 2021

REACTIONS (3)
  - Injection site pain [Unknown]
  - Surgery [Unknown]
  - ADAMTS13 activity decreased [Unknown]

NARRATIVE: CASE EVENT DATE: 2021
